FAERS Safety Report 13312688 (Version 1)
Quarter: 2017Q1

REPORT INFORMATION
  Report Type: Spontaneous
  Country: US (occurrence: US)
  Receive Date: 20170309
  Receipt Date: 20170309
  Transmission Date: 20170428
  Serious: Yes (Other)
  Sender: FDA-Public Use
  Company Number: US-ELI_LILLY_AND_COMPANY-US201703001923

PATIENT
  Sex: Female

DRUGS (2)
  1. FORTEO [Suspect]
     Active Substance: TERIPARATIDE
     Dosage: UNK, WEEKLY (1/W)
     Route: 065
  2. FORTEO [Suspect]
     Active Substance: TERIPARATIDE
     Indication: OSTEOPENIA
     Dosage: UNK, WEEKLY (1/W)
     Route: 065
     Dates: start: 20170102

REACTIONS (3)
  - Inappropriate schedule of drug administration [Unknown]
  - Cerebrospinal fluid leakage [Unknown]
  - Off label use [Unknown]

NARRATIVE: CASE EVENT DATE: 20170102
